FAERS Safety Report 6889308-8 (Version None)
Quarter: 2010Q3

REPORT INFORMATION
  Report Type: 
  Country: None (occurrence: None)
  Receive Date: 20100730
  Receipt Date: 20080125
  Transmission Date: 20110219
  Serious: No
  Sender: FDA-Public Use
  Company Number: US-PFIZER INC-2008008191

PATIENT
  Sex: Male

DRUGS (3)
  1. DOXYCYCLINE [Suspect]
     Indication: URINARY TRACT INFECTION
  2. CIPROFLOXACIN [Suspect]
  3. BACTRIM [Suspect]

REACTIONS (12)
  - ASTHENIA [None]
  - EYE HAEMORRHAGE [None]
  - EYE IRRITATION [None]
  - FATIGUE [None]
  - GENERAL PHYSICAL HEALTH DETERIORATION [None]
  - GENITAL PAIN [None]
  - MALAISE [None]
  - NASAL DISCOMFORT [None]
  - ORAL DISCOMFORT [None]
  - PROSTATE INFECTION [None]
  - TINNITUS [None]
  - URINARY TRACT PAIN [None]
